FAERS Safety Report 7272472-9 (Version None)
Quarter: 2011Q1

REPORT INFORMATION
  Report Type: 
  Country: None (occurrence: None)
  Receive Date: 20110131
  Receipt Date: 20110131
  Transmission Date: 20110831
  Serious: Yes (Other)
  Sender: FDA-Public Use
  Company Number: None

PATIENT
  Age: 19 Year
  Sex: Male
  Weight: 70.7 kg

DRUGS (3)
  1. TRILEPTAL [Concomitant]
  2. LACOSAMIDE [Suspect]
     Indication: CONVULSION
     Dosage: 150 MG, ONCE, INTRAVENOUS
     Route: 042
  3. LAMICTAL XR [Concomitant]

REACTIONS (3)
  - FEELING DRUNK [None]
  - NAUSEA [None]
  - VOMITING [None]
